FAERS Safety Report 7492009-9 (Version None)
Quarter: 2011Q2

REPORT INFORMATION
  Report Type: 
  Country: None (occurrence: None)
  Receive Date: 20110519
  Receipt Date: 20110504
  Transmission Date: 20111010
  Serious: No
  Sender: FDA-Public Use
  Company Number: US-B.I. PHARMACEUTICALS,INC./RIDGEFIELD-2011-BP-12428BP

PATIENT
  Age: 87 Year
  Sex: Female

DRUGS (7)
  1. XANAX [Concomitant]
     Indication: ANXIETY
     Dosage: 0.25 NR
     Route: 048
     Dates: start: 20000101
  2. COUMADIN [Concomitant]
     Indication: ATRIAL FIBRILLATION
     Dosage: 5 MG
     Route: 048
     Dates: start: 20000101
  3. MICARDIS [Suspect]
     Indication: HYPERTENSION
     Dosage: 40 MG
     Route: 048
     Dates: start: 20090101
  4. INSULIN [Concomitant]
     Indication: DIABETES MELLITUS
     Dates: start: 19900101
  5. LOPRESSOR [Concomitant]
     Indication: HYPERTENSION
     Dosage: 50 MG
     Route: 048
     Dates: start: 20090101
  6. LASIX [Concomitant]
     Indication: HYPERTENSION
     Dosage: 40 MG
     Route: 048
     Dates: start: 20090101
  7. ENALAPRIL MALEATE [Concomitant]
     Indication: HYPERTENSION
     Dosage: 40 MG
     Route: 048
     Dates: start: 20090101

REACTIONS (4)
  - CHROMATURIA [None]
  - DIARRHOEA [None]
  - DRUG INEFFECTIVE [None]
  - POLLAKIURIA [None]
